FAERS Safety Report 7351109-4 (Version None)
Quarter: 2011Q1

REPORT INFORMATION
  Report Type: 
  Country: None (occurrence: None)
  Receive Date: 20110314
  Receipt Date: 20110307
  Transmission Date: 20110831
  Serious: Yes (Other)
  Sender: FDA-Public Use
  Company Number: IT-TEVA-253619ISR

PATIENT

DRUGS (3)
  1. PHENOBARBITAL [Suspect]
  2. POLIGLUSAM [Interacting]
     Indication: MEDICAL DIET
  3. VALPROIC ACID [Suspect]

REACTIONS (2)
  - EPILEPSY [None]
  - DRUG INTERACTION [None]
